FAERS Safety Report 4739433-2 (Version None)
Quarter: 2005Q3

REPORT INFORMATION
  Report Type: 
  Country: None (occurrence: None)
  Receive Date: 20050808
  Receipt Date: 20050808
  Transmission Date: 20060218
  Serious: Yes (Death)
  Sender: FDA-Public Use
  Company Number: None

PATIENT
  Sex: Female
  Weight: 90.9 kg

DRUGS (7)
  1. DEFIBROTIDE [Suspect]
     Indication: VENOOCCLUSIVE LIVER DISEASE
     Dosage: 60 MG/KG Q24HOURS INTRAVENOUS
     Route: 042
     Dates: start: 20050803, end: 20050803
  2. SOLU-MEDROL [Concomitant]
  3. PROGRAF [Concomitant]
  4. MYCOPHENOLATE [Concomitant]
  5. LACTULOSE [Concomitant]
  6. CASPOFUNGIN [Concomitant]
  7. ACYCLOVIR [Concomitant]

REACTIONS (4)
  - HYPOTENSION [None]
  - PULMONARY OEDEMA [None]
  - RENAL FAILURE [None]
  - TACHYPNOEA [None]
